FAERS Safety Report 5080958-0 (Version None)
Quarter: 2006Q3

REPORT INFORMATION
  Report Type: 
  Country: None (occurrence: None)
  Receive Date: 20060810
  Receipt Date: 20060727
  Transmission Date: 20061208
  Serious: Yes (Death, Hospitalization)
  Sender: FDA-Public Use
  Company Number: REM_00223_2006

PATIENT
  Sex: Female

DRUGS (1)
  1. REMODULIN [Suspect]
     Indication: PULMONARY HYPERTENSION
     Dates: start: 20060201

REACTIONS (12)
  - ABASIA [None]
  - CARDIAC TAMPONADE [None]
  - CONDITION AGGRAVATED [None]
  - DRUG INEFFECTIVE [None]
  - DYSPNOEA [None]
  - GENERAL PHYSICAL HEALTH DETERIORATION [None]
  - INSOMNIA [None]
  - PERICARDIAL EFFUSION [None]
  - PHARMACEUTICAL PRODUCT COMPLAINT [None]
  - PULMONARY HYPERTENSION [None]
  - STOMACH DISCOMFORT [None]
  - VENTRICLE RUPTURE [None]
